FAERS Safety Report 14670683 (Version 2)
Quarter: 2018Q1

REPORT INFORMATION
  Report Type: Spontaneous
  Country: FR (occurrence: FR)
  Receive Date: 20180322
  Receipt Date: 20180329
  Transmission Date: 20180509
  Serious: Yes (Other)
  Sender: FDA-Public Use
  Company Number: FR-TEVA-2018-FR-870017

PATIENT
  Age: 68 Year
  Sex: Female

DRUGS (1)
  1. LEVODOPA CARBIDOPA TEVA 100 MG/10 MG [Suspect]
     Active Substance: CARBIDOPA\LEVODOPA
     Indication: PARKINSON^S DISEASE
     Dosage: 1 DOSAGE FORM = 10 MG CARBIDOPA + 100 MG LEVODOPA
     Route: 065
     Dates: end: 201802

REACTIONS (3)
  - Parkinsonism [Recovered/Resolved]
  - Immobile [Recovered/Resolved]
  - Hypokinesia [Recovered/Resolved]

NARRATIVE: CASE EVENT DATE: 201802
